FAERS Safety Report 4753082-1 (Version None)
Quarter: 2005Q3

REPORT INFORMATION
  Report Type: 
  Country: None (occurrence: None)
  Receive Date: 20050826
  Receipt Date: 20050314
  Transmission Date: 20060218
  Serious: Yes (Hospitalization, Disabling, Other)
  Sender: FDA-Public Use
  Company Number: US-MERCK-0503USA02887

PATIENT
  Age: 59 Year
  Sex: Female
  Weight: 80 kg

DRUGS (3)
  1. VIOXX [Suspect]
     Indication: ARTHRITIS
     Route: 048
     Dates: start: 20000701, end: 20020601
  2. CELEBREX [Concomitant]
     Route: 065
     Dates: start: 20010101, end: 20020101
  3. BEXTRA [Concomitant]
     Route: 065
     Dates: start: 20010101, end: 20010101

REACTIONS (14)
  - ARTHRITIS [None]
  - ARTHROPATHY [None]
  - BACK DISORDER [None]
  - CALCINOSIS [None]
  - CARDIAC DISORDER [None]
  - COLITIS [None]
  - DISLOCATION OF VERTEBRA [None]
  - DIVERTICULITIS [None]
  - GALLBLADDER DISORDER [None]
  - HYPERTENSION [None]
  - IRRITABLE BOWEL SYNDROME [None]
  - LOSS OF CONSCIOUSNESS [None]
  - MYOCARDIAL INFARCTION [None]
  - SPONDYLITIS [None]
